FAERS Safety Report 8018473-4 (Version None)
Quarter: 2012Q1

REPORT INFORMATION
  Report Type: 
  Country: None (occurrence: None)
  Receive Date: 20120103
  Receipt Date: 20111223
  Transmission Date: 20120608
  Serious: Yes (Hospitalization)
  Sender: FDA-Public Use
  Company Number: US-ASTELLAS-2011US008691

PATIENT
  Sex: Male
  Weight: 88 kg

DRUGS (8)
  1. ADENOSCAN [Suspect]
     Indication: SCAN MYOCARDIAL PERFUSION
     Dosage: 73.8 MG, TOTAL DOSE
     Route: 042
     Dates: start: 20110919, end: 20110919
  2. SUSPECT STUDY DRUG [Suspect]
     Indication: PRODUCT USED FOR UNKNOWN INDICATION
     Dosage: UNK
     Route: 065
  3. METFORMIN HCL [Concomitant]
     Indication: TYPE 2 DIABETES MELLITUS
     Dosage: 2000 MG, UID/QD
     Route: 048
     Dates: start: 20060101
  4. ASPIRIN [Concomitant]
     Indication: CORONARY ARTERY DISEASE
     Dosage: 325 MG, UID/QD
     Route: 048
     Dates: start: 19910101
  5. GLIMEPIRIDE [Concomitant]
     Indication: TYPE 2 DIABETES MELLITUS
     Dosage: 6 MG, UID/QD
     Route: 048
     Dates: start: 19990101
  6. PREVACID [Concomitant]
     Indication: GASTROOESOPHAGEAL REFLUX DISEASE
     Dosage: 30 MG, UID/QD
     Route: 048
     Dates: start: 20010901
  7. NIFEDIPINE [Concomitant]
     Indication: HYPERTENSION
     Dosage: 60 MG, UID/QD
     Route: 048
     Dates: start: 19910101
  8. LOVASTATIN [Concomitant]
     Indication: HYPERLIPIDAEMIA
     Dosage: 40 MG, UID/QD
     Route: 048
     Dates: start: 19930101

REACTIONS (11)
  - ISCHAEMIC CARDIOMYOPATHY [None]
  - ATRIAL FIBRILLATION [None]
  - HAEMODYNAMIC INSTABILITY [None]
  - CORONARY ARTERY DISEASE [None]
  - LEUKOCYTOSIS [None]
  - HYPERTENSION [None]
  - HYPERGLYCAEMIA [None]
  - ANAEMIA [None]
  - RENAL FAILURE [None]
  - DEPRESSION [None]
  - ACUTE RESPIRATORY FAILURE [None]
